FAERS Safety Report 4775277-3 (Version None)
Quarter: 2005Q3

REPORT INFORMATION
  Report Type: 
  Country: None (occurrence: None)
  Receive Date: 20050921
  Receipt Date: 20050921
  Transmission Date: 20060218
  Serious: Yes (Other)
  Sender: FDA-Public Use
  Company Number: None

PATIENT
  Sex: Male
  Weight: 108.8633 kg

DRUGS (1)
  1. ZOLOFT [Suspect]
     Indication: SLEEP DISORDER
     Dosage: 1 TABLET 50 MG 1 DAILY PO
     Route: 048
     Dates: start: 20040901, end: 20050920

REACTIONS (2)
  - DEPRESSION [None]
  - SUICIDAL IDEATION [None]
